FAERS Safety Report 8502127-1 (Version None)
Quarter: 2012Q2

REPORT INFORMATION
  Report Type: 
  Country: None (occurrence: None)
  Receive Date: 20120405
  Receipt Date: 20101004
  Transmission Date: 20120825
  Serious: Yes (Life-Threatening)
  Sender: FDA-Public Use
  Company Number: PHHY2010US66403

PATIENT
  Age: 43 Year
  Sex: Female

DRUGS (1)
  1. RECLAST [Suspect]
     Dosage: INJECTION NOS
     Dates: start: 20100930

REACTIONS (2)
  - HYPOTENSION [None]
  - PAIN [None]
